FAERS Safety Report 12299668 (Version 2)
Quarter: 2016Q2

REPORT INFORMATION
  Report Type: Spontaneous
  Country: US (occurrence: US)
  Receive Date: 20160425
  Receipt Date: 20160428
  Transmission Date: 20160815
  Serious: Yes (Other)
  Sender: FDA-Public Use
  Company Number: US-PFIZER INC-2016226373

PATIENT
  Age: 65 Year
  Sex: Female
  Weight: 68.93 kg

DRUGS (3)
  1. ALPRAZOLAM. [Suspect]
     Active Substance: ALPRAZOLAM
     Indication: PANIC DISORDER
     Dosage: 2 MG, 5 TIMES A DAY
     Route: 048
  2. ALPRAZOLAM. [Suspect]
     Active Substance: ALPRAZOLAM
     Indication: POST-TRAUMATIC STRESS DISORDER
  3. ALPRAZOLAM. [Suspect]
     Active Substance: ALPRAZOLAM
     Dosage: UNK

REACTIONS (9)
  - Suicidal ideation [Unknown]
  - Drug ineffective [Unknown]
  - Heart rate increased [Unknown]
  - Feeling abnormal [Unknown]
  - Confusional state [Unknown]
  - Dizziness [Unknown]
  - Thinking abnormal [Unknown]
  - Drug intolerance [Unknown]
  - Speech disorder [Unknown]
